FAERS Safety Report 8842809 (Version 2)
Quarter: 2014Q2

REPORT INFORMATION
  Report Type: Spontaneous
  Country: US (occurrence: US)
  Receive Date: 20121016
  Receipt Date: 20131024
  Transmission Date: 20141212
  Serious: No
  Sender: FDA-Public Use
  Company Number: US-PFIZER INC-2012256903

PATIENT
  Sex: Male

DRUGS (1)
  1. DEPO-MEDROL [Suspect]
     Indication: INTERVERTEBRAL DISC DISORDER
     Dosage: UNK
     Route: 008

REACTIONS (3)
  - Off label use [Unknown]
  - Nausea [Unknown]
  - Flushing [Unknown]
